FAERS Safety Report 22784233 (Version 3)
Quarter: 2024Q4

REPORT INFORMATION
  Report Type: Spontaneous
  Country: KR (occurrence: KR)
  Receive Date: 20230803
  Receipt Date: 20241206
  Transmission Date: 20250115
  Serious: Yes (Other)
  Sender: MERCK
  Company Number: KR-009507513-2308KOR000517

PATIENT
  Age: 57 Year
  Sex: Male

DRUGS (1)
  1. KEYTRUDA [Suspect]
     Active Substance: PEMBROLIZUMAB
     Dosage: UNK
     Dates: start: 202211, end: 202303

REACTIONS (10)
  - Hypothyroidism [Unknown]
  - Immunodeficiency [Not Recovered/Not Resolved]
  - Angina pectoris [Unknown]
  - Hypothermia [Unknown]
  - Polyarthritis [Unknown]
  - Neck mass [Not Recovered/Not Resolved]
  - Quality of life decreased [Not Recovered/Not Resolved]
  - Hypertension [Unknown]
  - Peripheral coldness [Unknown]
  - Cardiovascular disorder [Unknown]

NARRATIVE: CASE EVENT DATE: 20230101
